FAERS Safety Report 4299267-2 (Version None)
Quarter: 2004Q1

REPORT INFORMATION
  Report Type: 
  Country: None (occurrence: None)
  Receive Date: 20040217
  Receipt Date: 20040204
  Transmission Date: 20041129
  Serious: Yes (Other)
  Sender: FDA-Public Use
  Company Number: US036784

PATIENT
  Age: 76 Year
  Sex: Female

DRUGS (11)
  1. ENBREL [Suspect]
     Indication: RHEUMATOID ARTHRITIS
     Dosage: 25 MG, TWICE WEEKLY, SC
     Route: 058
     Dates: start: 20021212, end: 20030428
  2. MELOXICAM [Concomitant]
  3. VENLAFAXINE HCL [Concomitant]
  4. LOSARTAN POTASSIUM [Concomitant]
  5. ATORVASTATIN [Concomitant]
  6. LANSOPRAZOLE [Concomitant]
  7. MEDROXYPROGESTERONE ACETATE [Concomitant]
  8. ESTROPIPATE [Concomitant]
  9. GABAPENTIN [Concomitant]
  10. TEMAZEPAM [Concomitant]
  11. PANCREALIPASE [Concomitant]

REACTIONS (11)
  - ASTHENIA [None]
  - BUNDLE BRANCH BLOCK LEFT [None]
  - CARDIOMYOPATHY [None]
  - CHEST DISCOMFORT [None]
  - DILATATION ATRIAL [None]
  - DYSPNOEA [None]
  - EJECTION FRACTION DECREASED [None]
  - FATIGUE [None]
  - NAUSEA [None]
  - OEDEMA PERIPHERAL [None]
  - VENTRICULAR DYSFUNCTION [None]
